FAERS Safety Report 9346760 (Version 1)
Quarter: 2013Q2

REPORT INFORMATION
  Report Type: Spontaneous
  Country: US (occurrence: US)
  Receive Date: 20130613
  Receipt Date: 20130613
  Transmission Date: 20140414
  Serious: No
  Sender: FDA-Public Use
  Company Number: US-MYLANLABS-2013S1005230

PATIENT
  Age: 65 Year
  Sex: Female
  Weight: 64.41 kg

DRUGS (4)
  1. CLOPIDOGREL TABLETS USP [Suspect]
     Indication: MYOCARDIAL INFARCTION
     Route: 048
     Dates: start: 201302
  2. B12-VITAMIIN [Concomitant]
     Indication: VITAMIN B12 DEFICIENCY
     Dosage: TAKEN FOR YEARS
     Route: 048
  3. ASA [Concomitant]
     Indication: MYOCARDIAL INFARCTION
     Dosage: TAKEN FOR YEARS
     Route: 048
  4. ISOSORBIDE MONONITRATE [Concomitant]
     Indication: MYOCARDIAL INFARCTION
     Dosage: TAKEN FOR YEARS
     Route: 048

REACTIONS (3)
  - Chest pain [Not Recovered/Not Resolved]
  - Malaise [Not Recovered/Not Resolved]
  - Asthenia [Not Recovered/Not Resolved]
